FAERS Safety Report 8217279-0 (Version None)
Quarter: 2012Q1

REPORT INFORMATION
  Report Type: 
  Country: None (occurrence: None)
  Receive Date: 20120319
  Receipt Date: 20120314
  Transmission Date: 20120608
  Serious: No
  Sender: FDA-Public Use
  Company Number: US-PFIZER INC-2012067860

PATIENT
  Sex: Female
  Weight: 95.238 kg

DRUGS (4)
  1. GEODON [Suspect]
     Indication: BIPOLAR DISORDER
     Dosage: 80 MG, 2X/DAY
     Route: 048
     Dates: start: 20110501
  2. TRAZODONE [Concomitant]
     Dosage: UNK
  3. ATIVAN [Concomitant]
     Dosage: UNK
  4. LAMICTAL [Concomitant]
     Dosage: UNK

REACTIONS (1)
  - FATIGUE [None]
